FAERS Safety Report 5079205-5 (Version None)
Quarter: 2006Q3

REPORT INFORMATION
  Report Type: 
  Country: None (occurrence: None)
  Receive Date: 20060720
  Receipt Date: 20050602
  Transmission Date: 20061208
  Serious: Yes (Disabling, Other)
  Sender: FDA-Public Use
  Company Number: 2005085461

PATIENT
  Age: 84 Year
  Sex: Female
  Weight: 72.5755 kg

DRUGS (2)
  1. CELEBREX [Suspect]
     Indication: ARTHRITIS
     Dosage: 100 MG (100 MG, 1 IN 1 D)
  2. ALL OTHER THERAPEUTIC PRODUCTS [Concomitant]

REACTIONS (4)
  - CATARACT [None]
  - INSOMNIA [None]
  - PRURITUS [None]
  - SCRATCH [None]
